FAERS Safety Report 5441124-X (Version None)
Quarter: 2007Q3

REPORT INFORMATION
  Report Type: 
  Country: None (occurrence: None)
  Receive Date: 20070831
  Receipt Date: 20070821
  Transmission Date: 20080115
  Serious: Yes (Other)
  Sender: FDA-Public Use
  Company Number: US-PFIZER INC-2007058073

PATIENT
  Sex: Female
  Weight: 96.818 kg

DRUGS (1)
  1. CHANTIX [Suspect]
     Indication: SMOKING CESSATION THERAPY

REACTIONS (4)
  - EAR INFECTION [None]
  - SENSATION OF FOREIGN BODY [None]
  - TINNITUS [None]
  - VOMITING [None]
